FAERS Safety Report 9054503 (Version 1)
Quarter: 2013Q1

REPORT INFORMATION
  Report Type: Spontaneous
  Country: US (occurrence: US)
  Receive Date: 20130208
  Receipt Date: 20130208
  Transmission Date: 20140127
  Serious: No
  Sender: FDA-Public Use
  Company Number: US-GLAXOSMITHKLINE-A0996830A

PATIENT
  Age: 69 Year
  Sex: Female

DRUGS (6)
  1. PAROXETINE [Suspect]
     Indication: DEPRESSION
     Dosage: 20MG PER DAY
     Route: 048
     Dates: end: 201209
  2. PAXIL [Suspect]
     Indication: DEPRESSION
     Dosage: 20MG PER DAY
     Route: 048
     Dates: start: 2007
  3. BLOOD PRESSURE MEDICATION [Concomitant]
     Indication: HYPERTENSION
  4. ANTI-CHOLESTEROL MEDICATION [Concomitant]
     Indication: BLOOD CHOLESTEROL INCREASED
  5. INSULIN [Concomitant]
  6. VERAPAMIL [Concomitant]

REACTIONS (1)
  - Alopecia [Not Recovered/Not Resolved]
